FAERS Safety Report 11613244 (Version 1)
Quarter: 2015Q4

REPORT INFORMATION
  Report Type: Spontaneous
  Country: US (occurrence: US)
  Receive Date: 20151008
  Receipt Date: 20151008
  Transmission Date: 20160304
  Serious: No
  Sender: FDA-Public Use
  Company Number: US-JNJFOC-20150824444

PATIENT
  Age: 68 Year
  Sex: Male
  Weight: 66.23 kg

DRUGS (11)
  1. FERROUS SULFATE [Concomitant]
     Active Substance: FERROUS SULFATE\FERROUS SULFATE, DRIED
     Route: 048
  2. FENTANYL TRANSDERMAL SYSTEM [Suspect]
     Active Substance: FENTANYL
     Indication: BACK PAIN
     Route: 062
     Dates: start: 20150806, end: 20150824
  3. IRON [Concomitant]
     Active Substance: IRON
     Indication: IRON DEFICIENCY
     Route: 048
     Dates: start: 2012
  4. VITAMIN C [Concomitant]
     Active Substance: ASCORBIC ACID
     Indication: IRON METABOLISM DISORDER
     Route: 048
     Dates: start: 2013
  5. TYLENOL [Concomitant]
     Active Substance: ACETAMINOPHEN
     Indication: BREAKTHROUGH PAIN
     Dosage: 6 PER UPTO 8 DAYS
     Route: 048
  6. LEVOTHYROXINE. [Concomitant]
     Active Substance: LEVOTHYROXINE
     Indication: THYROIDECTOMY
     Route: 048
     Dates: start: 201501
  7. VITAMIN B12 [Concomitant]
     Active Substance: CYANOCOBALAMIN
     Indication: NUTRITIONAL SUPPLEMENTATION
     Route: 048
     Dates: start: 2012
  8. VITAMIN D3 [Concomitant]
     Active Substance: CHOLECALCIFEROL
     Indication: THYROID DISORDER
     Route: 048
     Dates: start: 2014
  9. ASPIRIN. [Concomitant]
     Active Substance: ASPIRIN
     Route: 048
  10. TYLENOL [Concomitant]
     Active Substance: ACETAMINOPHEN
     Indication: BREAKTHROUGH PAIN
     Route: 048
     Dates: start: 2010
  11. BUPROPION XL [Concomitant]
     Active Substance: BUPROPION
     Indication: DEPRESSION
     Route: 048
     Dates: start: 201501

REACTIONS (8)
  - Feeling abnormal [Recovered/Resolved]
  - General physical health deterioration [Recovered/Resolved]
  - Gait disturbance [Recovered/Resolved]
  - Lethargy [Recovered/Resolved]
  - Hypoaesthesia [Recovered/Resolved]
  - Memory impairment [Recovered/Resolved]
  - Malaise [Recovered/Resolved]
  - Dizziness [Recovered/Resolved]

NARRATIVE: CASE EVENT DATE: 20150806
